FAERS Safety Report 7563709-7 (Version None)
Quarter: 2011Q2

REPORT INFORMATION
  Report Type: 
  Country: None (occurrence: None)
  Receive Date: 20110622
  Receipt Date: 20110616
  Transmission Date: 20111010
  Serious: Yes (Hospitalization)
  Sender: FDA-Public Use
  Company Number: GXBR2011US02407

PATIENT
  Sex: Female
  Weight: 51.701 kg

DRUGS (2)
  1. BACLOFEN [Concomitant]
     Dosage: UNK MG, UNK
  2. TRAZODONE HCL [Suspect]
     Indication: INSOMNIA
     Dosage: 100 MG, QHS
     Route: 048
     Dates: start: 20110504

REACTIONS (2)
  - HALLUCINATION [None]
  - MENTAL STATUS CHANGES [None]
